FAERS Safety Report 4592386-2 (Version None)
Quarter: 2005Q1

REPORT INFORMATION
  Report Type: 
  Country: None (occurrence: None)
  Receive Date: 20050228
  Receipt Date: 20050110
  Transmission Date: 20050727
  Serious: No
  Sender: FDA-Public Use
  Company Number: US-BRISTOL-MYERS SQUIBB COMPANY-12820346

PATIENT
  Sex: Female

DRUGS (3)
  1. ABILIFY [Suspect]
     Indication: AGITATION
     Dates: start: 20040901
  2. LITHIUM [Concomitant]
  3. EFFEXOR [Concomitant]

REACTIONS (1)
  - AMENORRHOEA [None]
